FAERS Safety Report 4715589-2 (Version None)
Quarter: 2005Q3

REPORT INFORMATION
  Report Type: 
  Country: None (occurrence: None)
  Receive Date: 20050713
  Receipt Date: 20050630
  Transmission Date: 20060218
  Serious: Yes (Life-Threatening)
  Sender: FDA-Public Use
  Company Number: 2005FR-00063

PATIENT
  Age: 77 Year
  Weight: 80 kg

DRUGS (13)
  1. ASPIRIN [Suspect]
     Indication: ACUTE CORONARY SYNDROME
     Dosage: 75 MG, ONCE DAILY
  2. REOPRO [Concomitant]
  3. CLOPIDOGREL BISULFATE [Concomitant]
  4. NICORANDIL [Concomitant]
  5. METFORMIN [Concomitant]
  6. GLICLAZIDE [Concomitant]
  7. SIMVASTATIN [Concomitant]
  8. AMLODIPINE [Concomitant]
  9. MIXTARD HUMAN 70/30 [Concomitant]
  10. LOSARTAN [Concomitant]
  11. LACTULOSE [Concomitant]
  12. SENNA [Concomitant]
  13. CIPROFLOXACIN [Concomitant]

REACTIONS (9)
  - ACUTE PRERENAL FAILURE [None]
  - AGITATION [None]
  - CIRCULATORY COLLAPSE [None]
  - CONFUSIONAL STATE [None]
  - DIALYSIS [None]
  - HAEMATEMESIS [None]
  - LACTIC ACIDOSIS [None]
  - MELAENA [None]
  - METABOLIC ACIDOSIS [None]
